FAERS Safety Report 24251357 (Version 1)
Quarter: 2024Q3

REPORT INFORMATION
  Report Type: Other
  Country: CN (occurrence: CN)
  Receive Date: 20240826
  Receipt Date: 20240826
  Transmission Date: 20241017
  Serious: Yes (Hospitalization)
  Sender: KARYOPHARM THERAPEUTICS
  Company Number: CN-ANTENGENE-20240802712

PATIENT

DRUGS (3)
  1. XPOVIO [Suspect]
     Active Substance: SELINEXOR
     Indication: Acute leukaemia
     Dosage: 60 MG, QW
     Route: 048
     Dates: start: 20240811, end: 20240822
  2. AZACITIDINE [Concomitant]
     Active Substance: AZACITIDINE
     Dosage: 100 MG, QD
     Route: 058
     Dates: start: 20240811, end: 20240817
  3. VENETOCLAX [Concomitant]
     Active Substance: VENETOCLAX
     Dosage: 200 MG, QD
     Route: 048
     Dates: start: 20240811, end: 20240822

REACTIONS (4)
  - White blood cell count decreased [Unknown]
  - Platelet count decreased [Recovering/Resolving]
  - Anaemia [Recovering/Resolving]
  - Off label use [Unknown]

NARRATIVE: CASE EVENT DATE: 20240811
